FAERS Safety Report 20332754 (Version 2)
Quarter: 2022Q2

REPORT INFORMATION
  Report Type: Report from Study
  Country: IN (occurrence: IN)
  Receive Date: 20220113
  Receipt Date: 20220419
  Transmission Date: 20220721
  Serious: Yes (Hospitalization, Other)
  Sender: FDA-Public Use
  Company Number: IN-NOVARTISPH-NVSC2022IN004438

PATIENT
  Age: 26 Year
  Sex: Female

DRUGS (1)
  1. SIMULECT [Suspect]
     Active Substance: BASILIXIMAB
     Indication: Renal transplant
     Dosage: 20 ML
     Route: 065
     Dates: start: 20211214, end: 20211218

REACTIONS (5)
  - Kidney transplant rejection [Recovered/Resolved]
  - Complications of transplanted kidney [Unknown]
  - Renal tubular injury [Unknown]
  - Urine output decreased [Unknown]
  - Blood creatinine increased [Unknown]

NARRATIVE: CASE EVENT DATE: 20211224
